FAERS Safety Report 22129778 (Version 1)
Quarter: 2023Q1

REPORT INFORMATION
  Report Type: Spontaneous
  Country: US (occurrence: US)
  Receive Date: 20230323
  Receipt Date: 20230323
  Transmission Date: 20230418
  Serious: No
  Sender: FDA-Public Use
  Company Number: US-GLAXOSMITHKLINE-US2023041946

PATIENT
  Sex: Female

DRUGS (1)
  1. ZEJULA [Suspect]
     Active Substance: NIRAPARIB
     Indication: Ovarian cancer
     Dosage: 200 MG, QD
     Route: 048
     Dates: start: 20230302

REACTIONS (6)
  - Asthenia [Unknown]
  - Headache [Unknown]
  - Joint stiffness [Unknown]
  - Urinary tract infection [Unknown]
  - Discomfort [Unknown]
  - Product dose omission in error [Unknown]
